FAERS Safety Report 4784524-3 (Version None)
Quarter: 2005Q3

REPORT INFORMATION
  Report Type: 
  Country: None (occurrence: None)
  Receive Date: 20050930
  Receipt Date: 20050920
  Transmission Date: 20060218
  Serious: Yes (Hospitalization)
  Sender: FDA-Public Use
  Company Number: FR-GLAXOSMITHKLINE-B0394800A

PATIENT
  Age: 81 Year
  Sex: Female

DRUGS (14)
  1. AUGMENTIN [Suspect]
     Route: 048
     Dates: start: 20050617, end: 20050627
  2. CEFTRIAXONE [Suspect]
     Dosage: 1G PER DAY
     Route: 042
     Dates: start: 20050628, end: 20050706
  3. RULID [Suspect]
     Dosage: 150MG TWICE PER DAY
     Route: 048
     Dates: start: 20050628, end: 20050706
  4. ATARAX 25 [Concomitant]
     Route: 065
  5. DIFFU K [Concomitant]
     Route: 065
  6. MEDROL [Concomitant]
     Route: 065
  7. MUCOMYST [Concomitant]
     Route: 065
  8. DAFALGAN [Concomitant]
     Route: 065
  9. LOVENOX [Concomitant]
     Route: 065
  10. SERMION [Concomitant]
     Route: 065
  11. NOCTRAN 10 [Concomitant]
     Route: 065
  12. TOCO 500 [Concomitant]
     Route: 065
  13. CALPEROS [Concomitant]
     Route: 065
  14. LAROXYL [Concomitant]
     Dosage: 18DROP PER DAY
     Route: 065

REACTIONS (18)
  - ALANINE AMINOTRANSFERASE INCREASED [None]
  - ASPARTATE AMINOTRANSFERASE INCREASED [None]
  - ASTHENIA [None]
  - BLOOD PHOSPHORUS INCREASED [None]
  - CHEST X-RAY ABNORMAL [None]
  - CRYPTOGENIC ORGANIZING PNEUMONIA [None]
  - DIARRHOEA [None]
  - GAMMA-GLUTAMYLTRANSFERASE INCREASED [None]
  - HYPERTHERMIA [None]
  - INFLAMMATION [None]
  - LUNG CREPITATION [None]
  - LUNG DISORDER [None]
  - LUNG INFILTRATION [None]
  - NORMOCHROMIC NORMOCYTIC ANAEMIA [None]
  - PAIN [None]
  - PULMONARY ALVEOLAR HAEMORRHAGE [None]
  - SPUTUM DISCOLOURED [None]
  - WHITE BLOOD CELL COUNT INCREASED [None]
